FAERS Safety Report 9059775 (Version 1)
Quarter: 2013Q1

REPORT INFORMATION
  Report Type: Spontaneous
  Country: US (occurrence: None)
  Receive Date: 20130206
  Receipt Date: 20130206
  Transmission Date: 20140127
  Serious: Yes (Other)
  Sender: FDA-Public Use
  Company Number: None

PATIENT
  Age: 73 Year
  Sex: 0
  Weight: 60.3 kg

DRUGS (4)
  1. RANITIDINE PRE MIXED BAG [Suspect]
     Indication: PREMEDICATION
     Route: 042
     Dates: start: 20120531, end: 20120531
  2. RANITIDINE PRE MIXED BAG [Suspect]
     Indication: CHEMOTHERAPY
     Route: 042
     Dates: start: 20120531, end: 20120531
  3. ONDANSETRON 40MG MULTIDOSE VIAL [Suspect]
     Indication: PREMEDICATION
     Route: 042
     Dates: start: 20120531, end: 20120531
  4. ONDANSETRON 40MG MULTIDOSE VIAL [Suspect]
     Indication: CHEMOTHERAPY
     Route: 042
     Dates: start: 20120531, end: 20120531

REACTIONS (3)
  - Nausea [None]
  - Abdominal pain [None]
  - Unresponsive to stimuli [None]
